FAERS Safety Report 9816030 (Version 1)
Quarter: 2014Q1

REPORT INFORMATION
  Report Type: Spontaneous
  Country: US (occurrence: US)
  Receive Date: 20140114
  Receipt Date: 20140114
  Transmission Date: 20141002
  Serious: No
  Sender: FDA-Public Use
  Company Number: US-TEVA-455884USA

PATIENT
  Age: 73 Year
  Sex: Female
  Weight: 65.83 kg

DRUGS (8)
  1. AZILECT [Suspect]
     Indication: PARKINSON^S DISEASE
     Dates: start: 201309
  2. DEPAKOTE [Concomitant]
     Indication: MIGRAINE
  3. PROPRANOLOL [Concomitant]
     Indication: MIGRAINE
  4. OMEPRAZOLE [Concomitant]
     Indication: GASTROINTESTINAL DISORDER
  5. TOPIRAMATE [Concomitant]
     Indication: MIGRAINE
  6. GABAPENTIN [Concomitant]
     Indication: MUSCLE DISORDER
  7. EVISTA [Concomitant]
     Indication: OSTEOPOROSIS
  8. VICODIN [Concomitant]
     Indication: BACK PAIN

REACTIONS (3)
  - Back pain [Not Recovered/Not Resolved]
  - Pain [Not Recovered/Not Resolved]
  - Pain [Not Recovered/Not Resolved]
